FAERS Safety Report 8362346 (Version 2)
Quarter: 2015Q1

REPORT INFORMATION
  Report Type: Report from Study
  Country: US (occurrence: US)
  Receive Date: 20120130
  Receipt Date: 20150303
  Transmission Date: 20150721
  Serious: Yes (Death)
  Sender: FDA-Public Use
  Company Number: US-ROCHE-1034438

PATIENT
  Sex: Male

DRUGS (8)
  1. TEMAZEPAM. [Concomitant]
     Active Substance: TEMAZEPAM
     Route: 065
  2. AVASTIN [Suspect]
     Active Substance: BEVACIZUMAB
     Indication: MALIGNANT URINARY TRACT NEOPLASM
     Route: 042
     Dates: start: 20060531
  3. AVASTIN [Suspect]
     Active Substance: BEVACIZUMAB
     Route: 042
     Dates: start: 20060809
  4. BENADRYL [Concomitant]
     Active Substance: DIPHENHYDRAMINE HYDROCHLORIDE
  5. PROPRANOLOL [Concomitant]
     Active Substance: PROPRANOLOL\PROPRANOLOL HYDROCHLORIDE
  6. TYLENOL [Concomitant]
     Active Substance: ACETAMINOPHEN
  7. AVASTIN [Suspect]
     Active Substance: BEVACIZUMAB
     Indication: RENAL CANCER
     Route: 042
     Dates: start: 20050708
  8. FLOMAX (UNITED STATES) [Concomitant]

REACTIONS (13)
  - Back pain [Unknown]
  - Masked facies [Unknown]
  - Blood urine present [Unknown]
  - Hypertension [Unknown]
  - Death [Fatal]
  - Tremor [Unknown]
  - Haematuria [Unknown]
  - Insomnia [Unknown]
  - Off label use [Unknown]
  - Aphonia [Unknown]
  - Dysphonia [Unknown]
  - Pulmonary mass [Unknown]
  - Drug ineffective [Unknown]
